FAERS Safety Report 24742111 (Version 4)
Quarter: 2025Q1

REPORT INFORMATION
  Report Type: Report from Study
  Country: US (occurrence: US)
  Receive Date: 20241217
  Receipt Date: 20250313
  Transmission Date: 20250409
  Serious: Yes (Hospitalization)
  Sender: ABBVIE
  Company Number: US-ABBVIE-6046535

PATIENT
  Age: 63 Year
  Sex: Male
  Weight: 91 kg

DRUGS (2)
  1. SKYRIZI [Suspect]
     Active Substance: RISANKIZUMAB-RZAA
     Indication: Crohn^s disease
     Route: 058
     Dates: start: 20241022
  2. SKYRIZI [Suspect]
     Active Substance: RISANKIZUMAB-RZAA
     Dosage: STRENGTH: 360 MG/2.4 ML
     Route: 058
     Dates: start: 20240717

REACTIONS (8)
  - Diastasis recti abdominis [Recovered/Resolved]
  - Incisional hernia [Recovered/Resolved]
  - Endodontic procedure [Unknown]
  - Tooth extraction [Unknown]
  - Skin disorder [Unknown]
  - Heart rate irregular [Not Recovered/Not Resolved]
  - Abscess oral [Not Recovered/Not Resolved]
  - Ventricular extrasystoles [Unknown]

NARRATIVE: CASE EVENT DATE: 20241101
